FAERS Safety Report 22299461 (Version 2)
Quarter: 2023Q2

REPORT INFORMATION
  Report Type: Spontaneous
  Country: DE (occurrence: DE)
  Receive Date: 20230509
  Receipt Date: 20230630
  Transmission Date: 20230722
  Serious: Yes (Other)
  Sender: FDA-Public Use
  Company Number: DE-002147023-NVSC2023DE104349

PATIENT
  Sex: Female

DRUGS (7)
  1. RYDAPT [Suspect]
     Active Substance: MIDOSTAURIN
     Indication: Acute myeloid leukaemia
     Dosage: 4 DOSAGE FORM (EVERY CYCLE ON DAYS 8-21)
     Route: 065
     Dates: start: 20220121, end: 20220512
  2. CYTARABINE [Suspect]
     Active Substance: CYTARABINE
     Indication: Acute myeloid leukaemia
     Dosage: UNK (2 CYCLES CONTINUOUSLY (DAYS 1-7)) (ROUTE: INFUSION)
     Route: 065
     Dates: start: 20220113, end: 2022
  3. CYTARABINE [Suspect]
     Active Substance: CYTARABINE
     Dosage: UNK (2X PER DAY FOR 3 HOURS (DAY 1, 3 AND 5)) (ROUTE: INFUSION)
     Route: 065
     Dates: start: 20220422
  4. METOCLOPRAMIDE [Suspect]
     Active Substance: METOCLOPRAMIDE
     Indication: Prophylaxis of nausea and vomiting
     Dosage: UNK
     Route: 065
     Dates: start: 2022
  5. DAUNORUBICIN [Suspect]
     Active Substance: DAUNORUBICIN
     Indication: Acute myeloid leukaemia
     Dosage: UNK (2 CYCLES (DAYS 3, 4 AND 5))
     Route: 065
     Dates: start: 20220115, end: 2022
  6. MYLOTARG [Suspect]
     Active Substance: GEMTUZUMAB OZOGAMICIN
     Indication: Acute myeloid leukaemia
     Dosage: UNK (ON DAY 1, 4 AND 7)
     Route: 065
     Dates: start: 20220113
  7. DIMETHINDENE [Suspect]
     Active Substance: DIMETHINDENE
     Indication: Allergy prophylaxis
     Dosage: UNK
     Route: 065
     Dates: start: 20220113

REACTIONS (24)
  - White blood cell count decreased [Not Recovered/Not Resolved]
  - Platelet count decreased [Not Recovered/Not Resolved]
  - Contusion [Not Recovered/Not Resolved]
  - Myelofibrosis [Recovering/Resolving]
  - Bone marrow failure [Unknown]
  - Graft versus host disease in skin [Recovering/Resolving]
  - Skin burning sensation [Recovering/Resolving]
  - Muscle spasms [Unknown]
  - Disturbance in attention [Unknown]
  - Onychoclasis [Unknown]
  - Haemoglobin decreased [Unknown]
  - Dyspnoea [Not Recovered/Not Resolved]
  - Nasopharyngitis [Recovering/Resolving]
  - COVID-19 [Recovered/Resolved]
  - Infection [Unknown]
  - Limb discomfort [Unknown]
  - Paraesthesia [Not Recovered/Not Resolved]
  - Decreased appetite [Unknown]
  - Ageusia [Unknown]
  - Nervous system disorder [Unknown]
  - Nausea [Unknown]
  - Fatigue [Unknown]
  - Tremor [Not Recovered/Not Resolved]
  - Insomnia [Unknown]

NARRATIVE: CASE EVENT DATE: 20220101
